FAERS Safety Report 16338337 (Version 4)
Quarter: 2020Q3

REPORT INFORMATION
  Report Type: Spontaneous
  Country: US (occurrence: US)
  Receive Date: 20190521
  Receipt Date: 20200814
  Transmission Date: 20201102
  Serious: No
  Sender: FDA-Public Use
  Company Number: US-GILEAD-2019-0408514

PATIENT
  Age: 34 Year
  Sex: Male
  Weight: 95.24 kg

DRUGS (53)
  1. BIKTARVY [Concomitant]
     Active Substance: BICTEGRAVIR SODIUM\EMTRICITABINE\TENOFOVIR ALAFENAMIDE FUMARATE
  2. XANAX [Concomitant]
     Active Substance: ALPRAZOLAM
  3. OMEPRAZOLE. [Concomitant]
     Active Substance: OMEPRAZOLE
  4. HIBICLENS [Concomitant]
     Active Substance: CHLORHEXIDINE GLUCONATE
  5. PEGASYS [Concomitant]
     Active Substance: PEGINTERFERON ALFA-2A
  6. KLONOPIN [Concomitant]
     Active Substance: CLONAZEPAM
  7. VIREAD [Suspect]
     Active Substance: TENOFOVIR DISOPROXIL FUMARATE
     Dosage: 1 DOSAGE FORM, QD
     Route: 048
     Dates: start: 20130405, end: 201607
  8. TRUVADA [Suspect]
     Active Substance: EMTRICITABINE\TENOFOVIR DISOPROXIL FUMARATE
     Indication: HIV INFECTION
     Dosage: 1 DOSAGE FORM, QD
     Route: 048
     Dates: start: 200708, end: 20130405
  9. EPZICOM [Concomitant]
     Active Substance: ABACAVIR SULFATE\LAMIVUDINE
  10. ONDANSETRON [Concomitant]
     Active Substance: ONDANSETRON
  11. ACNE [SALICYLIC ACID] [Concomitant]
  12. SEROQUEL [Concomitant]
     Active Substance: QUETIAPINE FUMARATE
  13. KETOCONAZOLE. [Concomitant]
     Active Substance: KETOCONAZOLE
  14. IBUPROFEN. [Concomitant]
     Active Substance: IBUPROFEN
  15. AMOXICILLIN. [Concomitant]
     Active Substance: AMOXICILLIN
  16. NAPROXEN. [Concomitant]
     Active Substance: NAPROXEN
  17. TIVICAY [Concomitant]
     Active Substance: DOLUTEGRAVIR SODIUM
  18. AZELASTINE HCL [Concomitant]
     Active Substance: AZELASTINE HYDROCHLORIDE
  19. FISH OIL [Concomitant]
     Active Substance: FISH OIL
  20. INTELENCE [Concomitant]
     Active Substance: ETRAVIRINE
  21. BICILLIN L A [Concomitant]
  22. ZOLOFT [Concomitant]
     Active Substance: SERTRALINE HYDROCHLORIDE
  23. ASPIRIN [ACETYLSALICYLIC ACID] [Concomitant]
     Active Substance: ASPIRIN
  24. ESOMEPRAZOLE. [Concomitant]
     Active Substance: ESOMEPRAZOLE MAGNESIUM
  25. PREZISTA [Concomitant]
     Active Substance: DARUNAVIR ETHANOLATE
  26. NORVIR [Concomitant]
     Active Substance: RITONAVIR
  27. REYATAZ [Concomitant]
     Active Substance: ATAZANAVIR SULFATE
  28. VITAMIN C [Concomitant]
     Active Substance: ASCORBIC ACID
  29. VITAMIN E [Concomitant]
     Active Substance: .ALPHA.-TOCOPHEROL
  30. BACTRIM DS [Concomitant]
     Active Substance: SULFAMETHOXAZOLE\TRIMETHOPRIM
  31. ACETAMINOPHEN. [Concomitant]
     Active Substance: ACETAMINOPHEN
  32. PENICILLIN NOS [Concomitant]
     Active Substance: PENICILLIN
  33. DESCOVY [Concomitant]
     Active Substance: EMTRICITABINE\TENOFOVIR ALAFENAMIDE FUMARATE
  34. CLINDAMYCIN HCL [Concomitant]
     Active Substance: CLINDAMYCIN HYDROCHLORIDE
  35. CORTISONE [Concomitant]
     Active Substance: CORTISONE
  36. FAMOTIDINE. [Concomitant]
     Active Substance: FAMOTIDINE
  37. COMPLERA [Suspect]
     Active Substance: EMTRICITABINE\RILPIVIRINE HYDROCHLORIDE\TENOFOVIR DISOPROXIL FUMARATE
     Indication: HIV INFECTION
     Dosage: UNK
     Route: 048
     Dates: start: 2017, end: 201812
  38. PREZCOBIX [Concomitant]
     Active Substance: COBICISTAT\DARUNAVIR ETHANOLATE
  39. BENZOYL PEROXIDE. [Concomitant]
     Active Substance: BENZOYL PEROXIDE
  40. DIPHENHYDRAMINE. [Concomitant]
     Active Substance: DIPHENHYDRAMINE
  41. BACTRIM [Concomitant]
     Active Substance: SULFAMETHOXAZOLE\TRIMETHOPRIM
  42. VIREAD [Suspect]
     Active Substance: TENOFOVIR DISOPROXIL FUMARATE
     Indication: HIV INFECTION
     Dosage: 1 DOSAGE FORM, QD
     Route: 048
     Dates: start: 2006, end: 2018
  43. LEXAPRO [Concomitant]
     Active Substance: ESCITALOPRAM OXALATE
  44. DOXYCYCLINE HYCLATE. [Concomitant]
     Active Substance: DOXYCYCLINE HYCLATE
  45. BACTROBAN [Concomitant]
     Active Substance: MUPIROCIN\MUPIROCIN CALCIUM
  46. FLEXERIL [CEFIXIME] [Concomitant]
     Active Substance: CEFIXIME
  47. VICODIN [Concomitant]
     Active Substance: ACETAMINOPHEN\HYDROCODONE BITARTRATE
  48. TETRACYCLINE HCL [Concomitant]
     Active Substance: TETRACYCLINE HYDROCHLORIDE
  49. AZITHROMYCIN ANHYDROUS. [Concomitant]
     Active Substance: AZITHROMYCIN ANHYDROUS
  50. RIBAVIRIN. [Concomitant]
     Active Substance: RIBAVIRIN
  51. ERYTHROMYCIN. [Concomitant]
     Active Substance: ERYTHROMYCIN
  52. KEFLEX [Concomitant]
     Active Substance: CEPHALEXIN
  53. PRENATAL VITAMINS [Concomitant]
     Active Substance: VITAMINS

REACTIONS (11)
  - Bone density decreased [Not Recovered/Not Resolved]
  - Panic attack [Not Recovered/Not Resolved]
  - Tooth loss [Not Recovered/Not Resolved]
  - Depression [Not Recovered/Not Resolved]
  - Bone density abnormal [Unknown]
  - Anhedonia [Unknown]
  - Anxiety [Unknown]
  - Pain [Unknown]
  - Bone loss [Not Recovered/Not Resolved]
  - Emotional distress [Unknown]
  - Economic problem [Unknown]

NARRATIVE: CASE EVENT DATE: 20160218
